FAERS Safety Report 9881470 (Version 1)
Quarter: 2014Q1

REPORT INFORMATION
  Report Type: Report from Study
  Country: JP (occurrence: JP)
  Receive Date: 20140207
  Receipt Date: 20140207
  Transmission Date: 20141002
  Serious: Yes (Other)
  Sender: FDA-Public Use
  Company Number: JP-BAYER-2014-017101

PATIENT
  Sex: Female

DRUGS (1)
  1. LOW DOSE ASPIRIN [Suspect]
     Indication: ESSENTIAL THROMBOCYTHAEMIA

REACTIONS (3)
  - Maternal exposure during pregnancy [None]
  - Abortion spontaneous [None]
  - Off label use [None]
